FAERS Safety Report 8415054-5 (Version None)
Quarter: 2012Q2

REPORT INFORMATION
  Report Type: 
  Country: None (occurrence: None)
  Receive Date: 20120606
  Receipt Date: 20120530
  Transmission Date: 20120825
  Serious: Yes (Hospitalization)
  Sender: FDA-Public Use
  Company Number: GR-US-EMD SERONO, INC.-7136822

PATIENT
  Age: 57 Year
  Sex: Female

DRUGS (3)
  1. SOLU-MEDROL [Concomitant]
     Indication: MULTIPLE SCLEROSIS
     Route: 042
     Dates: start: 20120522, end: 20120528
  2. SOLU-MEDROL [Concomitant]
     Route: 048
     Dates: start: 20120529
  3. REBIF [Suspect]
     Indication: MULTIPLE SCLEROSIS
     Dates: start: 19990601

REACTIONS (1)
  - HYPOAESTHESIA [None]
